FAERS Safety Report 8763379 (Version 6)
Quarter: 2014Q2

REPORT INFORMATION
  Report Type: Spontaneous
  Country: US (occurrence: US)
  Receive Date: 20120831
  Receipt Date: 20140404
  Transmission Date: 20141212
  Serious: Yes (Hospitalization, Other)
  Sender: FDA-Public Use
  Company Number: US-009507513-1207USA007391

PATIENT
  Sex: Female
  Weight: 80.27 kg

DRUGS (2)
  1. FOSAMAX [Suspect]
     Indication: OSTEOPOROSIS PROPHYLAXIS
     Dosage: 70 MG, QW
     Route: 048
     Dates: start: 2001, end: 200903
  2. FOSAMAX [Suspect]
     Indication: OSTEOPOROSIS POSTMENOPAUSAL

REACTIONS (28)
  - Intramedullary rod insertion [Unknown]
  - Femur fracture [Unknown]
  - Essential hypertension [Unknown]
  - Hyperlipidaemia [Unknown]
  - Osteoarthritis [Unknown]
  - Anaemia postoperative [Unknown]
  - Syncope [Unknown]
  - Urinary tract infection [Recovered/Resolved]
  - Electrolyte imbalance [Recovered/Resolved]
  - Adverse event [Unknown]
  - Cataract operation [Unknown]
  - Hypovolaemia [Unknown]
  - Intervertebral disc degeneration [Unknown]
  - Osteopenia [Unknown]
  - Dry mouth [Unknown]
  - Kyphosis [Unknown]
  - Osteoarthritis [Unknown]
  - Osteoarthritis [Unknown]
  - Foot deformity [Unknown]
  - Body height decreased [Unknown]
  - Sciatica [Unknown]
  - Spinal column stenosis [Unknown]
  - Tendonitis [Unknown]
  - Skin lesion [Unknown]
  - Gastrooesophageal reflux disease [Unknown]
  - Nausea [Unknown]
  - Dyspepsia [Unknown]
  - Arthralgia [Unknown]
